FAERS Safety Report 6372497-1 (Version None)
Quarter: 2009Q3

REPORT INFORMATION
  Report Type: 
  Country: None (occurrence: None)
  Receive Date: 20090924
  Receipt Date: 20081119
  Transmission Date: 20100115
  Serious: Yes (Other)
  Sender: FDA-Public Use
  Company Number: US-ASTRAZENECA-2008UW17345

PATIENT
  Age: 17940 Day
  Sex: Male
  Weight: 77.1 kg

DRUGS (8)
  1. SEROQUEL [Suspect]
     Indication: SCHIZOPHRENIA
     Dosage: 200 MG TWO AT NIGHT
     Route: 048
     Dates: start: 20050601, end: 20060301
  2. ABILIFY [Concomitant]
     Dates: start: 20060101
  3. GEODON [Concomitant]
     Dates: start: 20050101
  4. HALDOL [Concomitant]
  5. RISPERDAL [Concomitant]
     Dates: start: 20040101
  6. THORAZINE [Concomitant]
  7. ZYPREXA [Concomitant]
     Dates: start: 20020827
  8. COLERTIN [Concomitant]

REACTIONS (2)
  - DIABETIC COMA [None]
  - TYPE 2 DIABETES MELLITUS [None]
